FAERS Safety Report 10034719 (Version 1)
Quarter: 2014Q1

REPORT INFORMATION
  Report Type: Spontaneous
  Country: US (occurrence: None)
  Receive Date: 20140306
  Receipt Date: 20140306
  Transmission Date: 20141002
  Serious: Yes (Hospitalization, Other)
  Sender: FDA-Public Use
  Company Number: 163-21880-13073984

PATIENT
  Age: 69 Year
  Sex: Female

DRUGS (13)
  1. REVLIMID (LENALIDOMIDE) (5 MILLIGRAM, CAPSULES) [Suspect]
     Indication: PLASMA CELL MYELOMA
     Dosage: ON DIALYSIS QD FOR 2 WEEKS, 1 WEEK OFF
     Route: 048
     Dates: start: 20130628, end: 20130712
  2. VELCADE (BORTEZOMIB) [Concomitant]
  3. DECADRON (DEXAMETHASONE) [Concomitant]
  4. VALTREX (VALACICLOVIR HYDROCHLORIDE) [Concomitant]
  5. FLUCONAZOLE [Concomitant]
  6. CARVEDILOL [Concomitant]
  7. MEPRON (ATOVAQUONE) [Concomitant]
  8. FOLIC ACID VITAMIN B COMPLEX WITH C (BEVITOTAL COMP.) [Concomitant]
  9. RENAGEL (SEVELAMER HYDROCHLORIDE) [Concomitant]
  10. ZOFRAN (ONDANSETRON HYDROCHLORIDE) [Concomitant]
  11. ZOLOFT (SERTRALINE HYDROCHLORIDE) [Concomitant]
  12. PROTONIX [Concomitant]
  13. ASPIRIN (ACETYLSALICYLIC ACID) [Concomitant]

REACTIONS (3)
  - Abscess intestinal [None]
  - Diverticulitis [None]
  - Small intestinal obstruction [None]
